FAERS Safety Report 6675168-7 (Version None)
Quarter: 2010Q2

REPORT INFORMATION
  Report Type: 
  Country: None (occurrence: None)
  Receive Date: 20100409
  Receipt Date: 20100331
  Transmission Date: 20101027
  Serious: Yes (Hospitalization)
  Sender: FDA-Public Use
  Company Number: GXKR2010JP03814

PATIENT
  Age: 43 Year
  Sex: Female

DRUGS (7)
  1. METHOTREXATE [Suspect]
     Indication: PROPHYLAXIS AGAINST GRAFT VERSUS HOST DISEASE
     Dosage: 15 MG/M2 ON DAY 1
  2. METHOTREXATE [Suspect]
     Dosage: 10 MG/M2 ON DAYS 3 AND 6
  3. CYCLOSPORINE [Suspect]
     Indication: PROPHYLAXIS AGAINST GRAFT VERSUS HOST DISEASE
     Dosage: 3 MG/KG/DAY
  4. PREDNISOLONE [Suspect]
     Dosage: 0.5 MG/KG/DAY
     Route: 065
  5. BUSULFEX [Suspect]
     Dosage: 0.8 MG/M2 ? 4/DAY ON DAYS 4-7
     Route: 042
  6. CYCLOPHOSPHAMIDE [Suspect]
     Dosage: 60 MG/KG/DAY ON DAYS 2 AND 3
  7. GRANULOCYTE COLONY STIMULATING FACTOR [Concomitant]
     Dosage: 250 UG/DAY

REACTIONS (6)
  - ACUTE GRAFT VERSUS HOST DISEASE [None]
  - CEREBRAL VENOUS THROMBOSIS [None]
  - HEADACHE [None]
  - RASH MACULO-PAPULAR [None]
  - THROMBOCYTOPENIA [None]
  - VOMITING [None]
